FAERS Safety Report 25212112 (Version 4)
Quarter: 2025Q4

REPORT INFORMATION
  Report Type: Report from Study
  Country: JP (occurrence: JP)
  Receive Date: 20250418
  Receipt Date: 20251224
  Transmission Date: 20260118
  Serious: Yes (Other)
  Sender: ALEXION PHARMACEUTICALS
  Company Number: JP-ASTRAZENECA-230019631_011820_P_1

PATIENT
  Age: 17 Year
  Sex: Male
  Weight: 50.6 kg

DRUGS (10)
  1. KOSELUGO [Suspect]
     Active Substance: SELUMETINIB
     Indication: Neurofibroma
     Dosage: 70 MILLIGRAM, QD
     Route: 061
     Dates: start: 20230310, end: 20231224
  2. KOSELUGO [Suspect]
     Active Substance: SELUMETINIB
     Dosage: 80 MILLIGRAM, QD
     Route: 061
     Dates: start: 20231225
  3. LOCOID [Concomitant]
     Active Substance: HYDROCORTISONE BUTYRATE
     Indication: Dermatitis acneiform
     Dosage: 0.1 PERCENT
     Route: 048
  4. GLYCOSAMINOGLYCANS [Concomitant]
     Active Substance: GLYCOSAMINOGLYCANS
     Indication: Dermatitis acneiform
     Dosage: UNK
     Route: 048
  5. Rinderon [Concomitant]
     Indication: Dermatitis acneiform
     Dosage: UNK
     Route: 048
  6. NADIFLOXACIN [Concomitant]
     Active Substance: NADIFLOXACIN
     Indication: Dermatitis acneiform
     Dosage: UNK
     Route: 048
  7. PROTOPIC [Concomitant]
     Active Substance: TACROLIMUS
     Indication: Dermatitis acneiform
     Dosage: UNK
     Route: 048
     Dates: start: 20230921, end: 20240826
  8. BENZOYL PEROXIDE [Concomitant]
     Active Substance: BENZOYL PEROXIDE
     Indication: Dermatitis acneiform
     Dosage: UNK
     Route: 048
  9. CLOBETASOL PROPIONATE [Concomitant]
     Active Substance: CLOBETASOL PROPIONATE
     Indication: Dermatitis acneiform
     Dosage: UNK
     Route: 048
  10. NIZORAL [Concomitant]
     Active Substance: KETOCONAZOLE
     Indication: Skin candida
     Dosage: 2 PERCENT
     Route: 048
     Dates: start: 20240826, end: 20241212

REACTIONS (3)
  - Rhabdomyolysis [Recovered/Resolved]
  - Dermatitis acneiform [Not Recovered/Not Resolved]
  - Skin candida [Recovered/Resolved]

NARRATIVE: CASE EVENT DATE: 20230316
